FAERS Safety Report 16349456 (Version 10)
Quarter: 2020Q3

REPORT INFORMATION
  Report Type: Report from Study
  Country: US (occurrence: US)
  Receive Date: 20190523
  Receipt Date: 20200823
  Transmission Date: 20201102
  Serious: Yes (Life-Threatening, Hospitalization)
  Sender: FDA-Public Use
  Company Number: US-ACTELION-A-US2018-177418

PATIENT
  Age: 47 Year
  Sex: Female

DRUGS (6)
  1. REMODULIN [Concomitant]
     Active Substance: TREPROSTINIL
  2. ADCIRCA [Concomitant]
     Active Substance: TADALAFIL
     Dosage: 40 MG, QD
     Route: 048
     Dates: start: 20161206
  3. PANTOPRAZOLE [Concomitant]
     Active Substance: PANTOPRAZOLE
     Indication: GASTROOESOPHAGEAL REFLUX DISEASE
  4. OPSUMIT [Suspect]
     Active Substance: MACITENTAN
     Indication: PULMONARY ARTERIAL HYPERTENSION
     Dosage: 10 MG, QD
     Route: 048
     Dates: start: 20161010
  5. ADEMPAS [Suspect]
     Active Substance: RIOCIGUAT
     Dosage: 2 MG, TID
     Route: 065
  6. ADEMPAS [Suspect]
     Active Substance: RIOCIGUAT
     Indication: PRODUCT USED FOR UNKNOWN INDICATION
     Dosage: 1.5 MG
     Route: 065

REACTIONS (35)
  - Impaired gastric emptying [Unknown]
  - Depression [Unknown]
  - Device leakage [Recovered/Resolved]
  - Gastrooesophageal reflux disease [Unknown]
  - Decreased appetite [Not Recovered/Not Resolved]
  - Paraesthesia [Unknown]
  - Bone pain [Unknown]
  - Dry skin [Not Recovered/Not Resolved]
  - Fatigue [Recovered/Resolved]
  - Oedema peripheral [Unknown]
  - Localised oedema [Unknown]
  - Hypotension [Not Recovered/Not Resolved]
  - Device issue [Unknown]
  - Condition aggravated [Not Recovered/Not Resolved]
  - Dyspnoea exertional [Unknown]
  - Pain in extremity [Not Recovered/Not Resolved]
  - Hospitalisation [Not Recovered/Not Resolved]
  - Anaemia [Unknown]
  - Dyspnoea [Recovered/Resolved]
  - Dizziness [Not Recovered/Not Resolved]
  - Neuropathy peripheral [Not Recovered/Not Resolved]
  - Abdominal discomfort [Unknown]
  - Headache [Not Recovered/Not Resolved]
  - Diarrhoea [Not Recovered/Not Resolved]
  - Abdominal distension [Unknown]
  - Nausea [Recovering/Resolving]
  - Pain [Not Recovered/Not Resolved]
  - Device occlusion [Recovered/Resolved]
  - Alopecia [Not Recovered/Not Resolved]
  - Pain in jaw [Unknown]
  - Catheter site haemorrhage [Recovered/Resolved]
  - Rash papular [Unknown]
  - Fibromyalgia [Unknown]
  - Constipation [Unknown]
  - Medial tibial stress syndrome [Unknown]

NARRATIVE: CASE EVENT DATE: 201808
